FAERS Safety Report 20869920 (Version 1)
Quarter: 2022Q2

REPORT INFORMATION
  Report Type: Spontaneous
  Country: IT (occurrence: IT)
  Receive Date: 20220525
  Receipt Date: 20220525
  Transmission Date: 20220720
  Serious: Yes (Hospitalization, Other)
  Sender: FDA-Public Use
  Company Number: None

PATIENT
  Age: 60 Year
  Sex: Male

DRUGS (3)
  1. CLONAZEPAM [Suspect]
     Active Substance: CLONAZEPAM
     Dosage: 3 BOTTLES TOTAL
     Route: 048
     Dates: start: 20211008, end: 20211008
  2. FLUVOXAMINE [Suspect]
     Active Substance: FLUVOXAMINE
     Dosage: 30 DF TOTAL
     Route: 048
     Dates: start: 20211008, end: 20211008
  3. FLURAZEPAM HYDROCHLORIDE [Suspect]
     Active Substance: FLURAZEPAM HYDROCHLORIDE
     Dosage: 10 DF TOTAL
     Route: 048
     Dates: start: 20211008, end: 20211008

REACTIONS (3)
  - Bradyphrenia [Recovering/Resolving]
  - Intentional self-injury [Unknown]
  - Asthenia [Unknown]

NARRATIVE: CASE EVENT DATE: 20211008
